FAERS Safety Report 5736651-1 (Version None)
Quarter: 2008Q2

REPORT INFORMATION
  Report Type: 
  Country: None (occurrence: None)
  Receive Date: 20080513
  Receipt Date: 20080505
  Transmission Date: 20081010
  Serious: Yes (Other)
  Sender: FDA-Public Use
  Company Number: US-PFIZER INC-2008038978

PATIENT
  Sex: Female

DRUGS (4)
  1. CELEBREX [Suspect]
     Indication: ARTHRITIS
  2. PROPOXYPHENE NAPSYLATE [Concomitant]
  3. METOPROLOL TARTRATE [Concomitant]
  4. VALSARTAN [Concomitant]

REACTIONS (3)
  - ASTHENIA [None]
  - CHOLECYSTECTOMY [None]
  - NAUSEA [None]
